FAERS Safety Report 6894862-6 (Version None)
Quarter: 2010Q3

REPORT INFORMATION
  Report Type: 
  Country: None (occurrence: None)
  Receive Date: 20100730
  Receipt Date: 20100730
  Transmission Date: 20110219
  Serious: Yes (Life-Threatening, Other)
  Sender: FDA-Public Use
  Company Number: None

PATIENT
  Age: 73 Year
  Sex: Female
  Weight: 57.6068 kg

DRUGS (1)
  1. HYDROCHLOROTHIAZIDE [Suspect]
     Indication: BLOOD PRESSURE
     Dosage: 12.5MG

REACTIONS (6)
  - DRUG HYPERSENSITIVITY [None]
  - DYSPNOEA [None]
  - GAIT DISTURBANCE [None]
  - HEART RATE IRREGULAR [None]
  - PAIN IN EXTREMITY [None]
  - PALPITATIONS [None]
